FAERS Safety Report 14193398 (Version 1)
Quarter: 2017Q4

REPORT INFORMATION
  Report Type: Spontaneous
  Country: US (occurrence: US)
  Receive Date: 20171115
  Receipt Date: 20171115
  Transmission Date: 20180321
  Serious: No
  Sender: FDA-Public Use
  Company Number: US-BAUSCH-BL-2017-001689

PATIENT
  Sex: Female

DRUGS (3)
  1. XENAZINE [Suspect]
     Active Substance: TETRABENAZINE
     Indication: HUNTINGTON^S DISEASE
     Route: 048
     Dates: start: 201502
  2. TETRABENAZINE. [Suspect]
     Active Substance: TETRABENAZINE
     Indication: HUNTINGTON^S DISEASE
     Route: 048
     Dates: start: 201607
  3. XENAZINE [Suspect]
     Active Substance: TETRABENAZINE
     Route: 048
     Dates: end: 201607

REACTIONS (3)
  - Arthropathy [Unknown]
  - Musculoskeletal discomfort [Unknown]
  - Limb discomfort [Unknown]
